FAERS Safety Report 8555660-0 (Version None)
Quarter: 2012Q3

REPORT INFORMATION
  Report Type: 
  Country: None (occurrence: None)
  Receive Date: 20120801
  Receipt Date: 20120721
  Transmission Date: 20120928
  Serious: Yes (Death, Hospitalization)
  Sender: FDA-Public Use
  Company Number: SE-PAR PHARMACEUTICAL, INC-2012SCPR004522

PATIENT

DRUGS (1)
  1. DIAZEPAM [Suspect]
     Indication: PRODUCT USED FOR UNKNOWN INDICATION
     Dosage: UNK, UNKNOWN
     Route: 065

REACTIONS (5)
  - LOSS OF CONSCIOUSNESS [None]
  - DEATH [None]
  - ASPIRATION [None]
  - TOXICITY TO VARIOUS AGENTS [None]
  - PNEUMONIA [None]
